FAERS Safety Report 18895380 (Version 1)
Quarter: 2021Q1

REPORT INFORMATION
  Report Type: Spontaneous
  Country: IN (occurrence: IN)
  Receive Date: 20210216
  Receipt Date: 20210216
  Transmission Date: 20210420
  Serious: Yes (Other)
  Sender: FDA-Public Use
  Company Number: IN-SUN PHARMACEUTICAL INDUSTRIES LTD-2021R1-280207

PATIENT
  Sex: Female

DRUGS (7)
  1. FENTANYL. [Suspect]
     Active Substance: FENTANYL
     Indication: INTRAOPERATIVE CARE
     Dosage: 2MCG/KG
     Route: 064
  2. PROPOFOL. [Suspect]
     Active Substance: PROPOFOL
     Indication: INTRAOPERATIVE CARE
     Dosage: 2MG/KG
     Route: 064
  3. ISOXSUPRINE [Suspect]
     Active Substance: ISOXSUPRINE
     Indication: UTERINE ATONY
     Dosage: 10 MILLIGRAM, BID
     Route: 065
  4. MIDAZOLAM. [Suspect]
     Active Substance: MIDAZOLAM
     Indication: INTRAOPERATIVE CARE
     Dosage: 0.05 MG/KG
     Route: 064
  5. GLYCOPYRROLATE. [Suspect]
     Active Substance: GLYCOPYRROLATE
     Indication: INTRAOPERATIVE CARE
     Dosage: 0.01 MG/KG
     Route: 064
  6. HYDROXYPROGESTERONE [Suspect]
     Active Substance: HYDROXYPROGESTERONE
     Indication: PREOPERATIVE CARE
     Dosage: 500MG
     Route: 030
  7. MICRONIZED PROGESTERONE [Suspect]
     Active Substance: PROGESTERONE
     Indication: PRODUCT USED FOR UNKNOWN INDICATION
     Dosage: 300 MG
     Route: 064

REACTIONS (2)
  - Foetal exposure during pregnancy [Unknown]
  - Premature baby [Unknown]
